FAERS Safety Report 6179944-9 (Version None)
Quarter: 2009Q2

REPORT INFORMATION
  Report Type: 
  Country: None (occurrence: None)
  Receive Date: 20090505
  Receipt Date: 20090420
  Transmission Date: 20091009
  Serious: Yes (Hospitalization)
  Sender: FDA-Public Use
  Company Number: TW-GENENTECH-281992

PATIENT
  Sex: Female

DRUGS (7)
  1. BEVACIZUMAB [Suspect]
     Indication: BREAST CANCER
     Dosage: 736.5 MG, Q3W
     Route: 042
     Dates: start: 20090114, end: 20090415
  2. EPIRUBICIN [Suspect]
     Indication: BREAST CANCER
     Dosage: 105 MG, Q3W
     Route: 042
     Dates: start: 20090114, end: 20090408
  3. CYCLOPHOSPHAMIDE [Suspect]
     Indication: BREAST CANCER
     Dosage: 840 MG, Q3W
     Route: 042
     Dates: start: 20090114, end: 20090408
  4. FLUOROURACIL [Suspect]
     Indication: BREAST CANCER
     Dosage: 840 MG, Q3W
     Route: 042
     Dates: start: 20090114, end: 20090408
  5. NYSTATIN [Concomitant]
     Indication: DRUG USE FOR UNKNOWN INDICATION
     Dosage: UNK
     Dates: start: 20090408
  6. DEXAMETHASONE TAB [Concomitant]
     Indication: DRUG USE FOR UNKNOWN INDICATION
     Dosage: UNK
     Dates: start: 20090408
  7. LORATADINE AND PSEUDOEPHEDRINE SULFATE [Concomitant]
     Indication: DRUG USE FOR UNKNOWN INDICATION
     Dosage: UNK
     Dates: start: 20090304

REACTIONS (1)
  - GINGIVAL ULCERATION [None]
